FAERS Safety Report 23592950 (Version 1)
Quarter: 2024Q1

REPORT INFORMATION
  Report Type: Spontaneous
  Country: US (occurrence: US)
  Receive Date: 20240304
  Receipt Date: 20240304
  Transmission Date: 20240410
  Serious: No
  Sender: FDA-Public Use
  Company Number: US-PFIZER INC-PV202400029571

PATIENT
  Age: 37 Year
  Sex: Male
  Weight: 90.159 kg

DRUGS (1)
  1. BOSULIF [Suspect]
     Active Substance: BOSUTINIB MONOHYDRATE
     Indication: Chronic myeloid leukaemia
     Dosage: UNK

REACTIONS (5)
  - White blood cell count increased [Unknown]
  - Alcohol abuse [Unknown]
  - Nausea [Unknown]
  - Vomiting [Unknown]
  - Laboratory test abnormal [Unknown]
